FAERS Safety Report 25300972 (Version 3)
Quarter: 2025Q2

REPORT INFORMATION
  Report Type: Report from Study
  Country: US (occurrence: US)
  Receive Date: 20250512
  Receipt Date: 20250626
  Transmission Date: 20250717
  Serious: No
  Sender: MALLINCKRODT
  Company Number: US-MALLINCKRODT-MNK202502273

PATIENT
  Age: 61 Year
  Sex: Female

DRUGS (3)
  1. CORTICOTROPIN [Suspect]
     Active Substance: CORTICOTROPIN
     Indication: Iridocyclitis
     Dosage: 80 UNITS
     Route: 058
  2. CORTICOTROPIN [Suspect]
     Active Substance: CORTICOTROPIN
     Indication: Uveitis
  3. CORTICOTROPIN [Suspect]
     Active Substance: CORTICOTROPIN
     Indication: Disease recurrence

REACTIONS (4)
  - Vision blurred [Not Recovered/Not Resolved]
  - Eye inflammation [Not Recovered/Not Resolved]
  - Liver function test increased [Recovering/Resolving]
  - Therapy non-responder [Not Recovered/Not Resolved]
